FAERS Safety Report 4926655-0 (Version None)
Quarter: 2006Q1

REPORT INFORMATION
  Report Type: 
  Country: None (occurrence: None)
  Receive Date: 20060228
  Receipt Date: 20050518
  Transmission Date: 20060701
  Serious: No
  Sender: FDA-Public Use
  Company Number: US-GLAXOSMITHKLINE-A0559179A

PATIENT
  Age: 47 Year
  Sex: Female

DRUGS (7)
  1. LAMICTAL [Suspect]
     Indication: BIPOLAR DISORDER
     Dosage: 150MG PER DAY
     Route: 048
     Dates: start: 20050310, end: 20050518
  2. MOBIC [Concomitant]
  3. NADOLOL [Concomitant]
  4. REMERON [Concomitant]
  5. XANAX [Concomitant]
  6. BENTYL [Concomitant]
  7. SINGULAIR [Concomitant]

REACTIONS (3)
  - PRURITUS [None]
  - RASH [None]
  - RASH PAPULAR [None]
